FAERS Safety Report 5811678-X (Version None)
Quarter: 2008Q3

REPORT INFORMATION
  Report Type: 
  Country: None (occurrence: None)
  Receive Date: 20080715
  Receipt Date: 20080715
  Transmission Date: 20090109
  Serious: Yes (Hospitalization, Other)
  Sender: FDA-Public Use
  Company Number: None

PATIENT
  Age: 21 Year
  Sex: Female
  Weight: 61.2356 kg

DRUGS (2)
  1. LOTENSIN HCT [Suspect]
     Indication: HYPERTENSION
     Dosage: 1 DAILY PO
     Route: 048
     Dates: start: 20071217, end: 20080710
  2. LOTENSIN HCT [Suspect]
     Indication: PROTEIN URINE PRESENT
     Dosage: 1 DAILY PO
     Route: 048
     Dates: start: 20071217, end: 20080710

REACTIONS (2)
  - DRUG EXPOSURE DURING PREGNANCY [None]
  - RENAL DISORDER [None]
